FAERS Safety Report 7997139-0 (Version None)
Quarter: 2011Q4

REPORT INFORMATION
  Report Type: 
  Country: None (occurrence: None)
  Receive Date: 20111221
  Receipt Date: 20111215
  Transmission Date: 20120403
  Serious: Yes (Death)
  Sender: FDA-Public Use
  Company Number: ES-ASTELLAS-2011EU009295

PATIENT
  Age: 51 Year
  Sex: Male

DRUGS (1)
  1. MYCAMINE [Suspect]
     Indication: PROPHYLAXIS
     Dosage: 50 MG, UNKNOWN/D
     Route: 042

REACTIONS (1)
  - DRUG INEFFECTIVE [None]
